FAERS Safety Report 24854006 (Version 1)
Quarter: 2025Q1

REPORT INFORMATION
  Report Type: Spontaneous
  Country: CN (occurrence: CN)
  Receive Date: 20250117
  Receipt Date: 20250117
  Transmission Date: 20250409
  Serious: Yes (Other)
  Sender: JOHNSON AND JOHNSON
  Company Number: CN-JNJFOC-20250106671

PATIENT
  Age: 73 Year
  Sex: Male

DRUGS (1)
  1. DARZALEX [Suspect]
     Active Substance: DARATUMUMAB
     Indication: Chronic obstructive pulmonary disease
     Dosage: DOSE: 2 BOTTLE
     Route: 041
     Dates: start: 20241226, end: 20241226

REACTIONS (9)
  - Hypersensitivity [Recovering/Resolving]
  - Chest discomfort [Recovering/Resolving]
  - Asthma [Recovering/Resolving]
  - Orthopnoea [Recovering/Resolving]
  - Oxygen saturation decreased [Recovering/Resolving]
  - Heart rate increased [Recovering/Resolving]
  - Blood pressure increased [Recovering/Resolving]
  - Infusion related reaction [Recovering/Resolving]
  - Off label use [Unknown]

NARRATIVE: CASE EVENT DATE: 20241226
